FAERS Safety Report 5989909-5 (Version None)
Quarter: 2008Q4

REPORT INFORMATION
  Report Type: 
  Country: None (occurrence: None)
  Receive Date: 20081210
  Receipt Date: 20081124
  Transmission Date: 20090506
  Serious: Yes (Hospitalization, Other)
  Sender: FDA-Public Use
  Company Number: DSU-2008-01371

PATIENT
  Age: 63 Year
  Sex: Female

DRUGS (5)
  1. OLMETEC PLUS (HYDROCHLOROTHIAZIDE, OLMESARTAN MEDOXOMIL) (TABLET) (HYD [Suspect]
     Indication: HYPERTENSION
     Dosage: 40 /25MG (20/12.5 MG BID), PER ORAL
     Route: 048
     Dates: start: 20080815, end: 20080818
  2. NORTEN (IMIDAPRIL) (IMIDAPRIL) [Suspect]
     Indication: HYPERTENSION
     Dosage: (10 MG)
  3. METFORMIN HCL [Suspect]
     Indication: DIABETES MELLITUS
     Dosage: (500 MG)
     Dates: start: 20080601, end: 20080828
  4. GLICLAZIDE (GLICLAZIDE) [Concomitant]
  5. SIMVASTATIN [Concomitant]

REACTIONS (8)
  - CONDITION AGGRAVATED [None]
  - DIABETES MELLITUS [None]
  - DYSPNOEA [None]
  - FEELING HOT [None]
  - HYPERSENSITIVITY [None]
  - HYPOAESTHESIA [None]
  - OEDEMA PERIPHERAL [None]
  - SWELLING FACE [None]
